FAERS Safety Report 9368535 (Version 3)
Quarter: 2013Q4

REPORT INFORMATION
  Report Type: Spontaneous
  Country: US (occurrence: US)
  Receive Date: 20130625
  Receipt Date: 20131220
  Transmission Date: 20140711
  Serious: Yes (Death, Hospitalization)
  Sender: FDA-Public Use
  Company Number: US-PFIZER INC-2013184832

PATIENT
  Age: 28 Year
  Sex: Female
  Weight: 70 kg

DRUGS (10)
  1. VALDECOXIB [Suspect]
     Indication: CONTUSION
     Dosage: 10 MG, 3X/DAY
  2. VALDECOXIB [Suspect]
     Indication: LIGAMENT SPRAIN
  3. METHOCARBAMOL [Suspect]
     Indication: CONTUSION
     Dosage: 750 MG (4 PER DAY, #30) ON DAY 16
  4. METHOCARBAMOL [Suspect]
     Indication: LIGAMENT SPRAIN
  5. METAXALONE [Suspect]
     Indication: CONTUSION
     Dosage: 800 MG (THRICE DAILY, #15) ON DAY 10
  6. METAXALONE [Suspect]
     Indication: LIGAMENT SPRAIN
  7. IBUPROFEN [Suspect]
     Indication: CONTUSION
     Dosage: 800 MG (THRICE DAILY, #30) ON DAY 1
  8. IBUPROFEN [Suspect]
     Indication: LIGAMENT SPRAIN
  9. CYCLOBENZAPRINE [Concomitant]
     Indication: CONTUSION
     Dosage: 10 MG (NIGHTLY, #30)
  10. CYCLOBENZAPRINE [Concomitant]
     Indication: LIGAMENT SPRAIN

REACTIONS (15)
  - Overdose [Fatal]
  - Drug prescribing error [Fatal]
  - Medication error [Fatal]
  - Toxicity to various agents [Fatal]
  - Haemorrhage intracranial [Fatal]
  - Respiratory failure [Fatal]
  - Renal failure [Fatal]
  - Hypertension [Fatal]
  - Secondary hypertension [Fatal]
  - Coma [Fatal]
  - Cardiomyopathy [Fatal]
  - Diabetes mellitus [Fatal]
  - Glomerulonephritis [Fatal]
  - Menorrhagia [Fatal]
  - Gastritis [Unknown]
